FAERS Safety Report 8910702 (Version 1)
Quarter: 2012Q4

REPORT INFORMATION
  Report Type: Spontaneous
  Country: TN (occurrence: None)
  Receive Date: 20121107
  Receipt Date: 20121107
  Transmission Date: 20130627
  Serious: Yes (Other)
  Sender: FDA-Public Use
  Company Number: FK201203248

PATIENT
  Age: 67 Year
  Sex: Male

DRUGS (4)
  1. AMIODARONE HCL [Suspect]
     Indication: ARRHYTHMIA SUPRAVENTRICULAR
     Dosage: 200 mg, per day, Unknown
     Dates: start: 2003
  2. ACENOCOUMAROL [Concomitant]
  3. RAMIPRIL (RAMIPRIL) [Concomitant]
  4. ALFUZOSINE [Concomitant]

REACTIONS (2)
  - Non-alcoholic steatohepatitis [None]
  - Hypertriglyceridaemia [None]
